FAERS Safety Report 8595629-3 (Version None)
Quarter: 2012Q3

REPORT INFORMATION
  Report Type: 
  Country: None (occurrence: None)
  Receive Date: 20120815
  Receipt Date: 20120808
  Transmission Date: 20120928
  Serious: Yes (Hospitalization)
  Sender: FDA-Public Use
  Company Number: JP-B.I. PHARMACEUTICALS,INC./RIDGEFIELD-2012-BP-17851NB

PATIENT
  Age: 85 Year
  Sex: Male
  Weight: 68.2 kg

DRUGS (5)
  1. AMLODIPINE [Concomitant]
     Route: 065
  2. PRADAXA [Suspect]
     Indication: ATRIAL FIBRILLATION
     Dosage: 220 MG
     Route: 048
     Dates: start: 20120411, end: 20120807
  3. OLMESARTAN MEDOXOMIL [Concomitant]
     Route: 065
  4. OMEPRAZOLE [Concomitant]
     Route: 065
  5. EPLERENONE [Concomitant]
     Route: 065

REACTIONS (1)
  - CEREBRAL INFARCTION [None]
